FAERS Safety Report 6175550-0 (Version None)
Quarter: 2009Q2

REPORT INFORMATION
  Report Type: 
  Country: None (occurrence: None)
  Receive Date: 20090501
  Receipt Date: 20090420
  Transmission Date: 20091009
  Serious: Yes (Other)
  Sender: FDA-Public Use
  Company Number: US-JNJFOC-20090300800

PATIENT
  Sex: Male
  Weight: 105.46 kg

DRUGS (5)
  1. REMICADE [Suspect]
     Indication: COLITIS ULCERATIVE
     Route: 042
  2. REMICADE [Suspect]
     Indication: RHEUMATOID ARTHRITIS
     Route: 042
  3. LIALDA [Concomitant]
     Indication: COLITIS ULCERATIVE
  4. TESTOSTERONE [Concomitant]
     Indication: HYPOTHALAMO-PITUITARY DISORDER
  5. PEPCID AC [Concomitant]

REACTIONS (4)
  - ARTHRALGIA [None]
  - ASTHENIA [None]
  - DYSPNOEA [None]
  - MUSCULAR WEAKNESS [None]
